FAERS Safety Report 16112000 (Version 1)
Quarter: 2019Q1

REPORT INFORMATION
  Report Type: Spontaneous
  Country: US (occurrence: US)
  Receive Date: 20190325
  Receipt Date: 20190325
  Transmission Date: 20190418
  Serious: No
  Sender: FDA-Public Use
  Company Number: US-JNJFOC-20190240475

PATIENT
  Sex: Male
  Weight: 68.04 kg

DRUGS (2)
  1. MENS ROGAINE EXTRA STRENGTH [Suspect]
     Active Substance: MINOXIDIL
     Indication: ALOPECIA
     Dosage: 1ML TO THE CROWN AND 1ML TO THE REST OF SCALP
     Route: 061
     Dates: start: 201902
  2. MENS ROGAINE EXTRA STRENGTH [Suspect]
     Active Substance: MINOXIDIL
     Indication: ALOPECIA
     Dosage: 1/2ML TO CROWN AND 1/2ML TO THE REST OF SCALP
     Route: 061

REACTIONS (5)
  - Pruritus [Recovered/Resolved]
  - Alopecia [Not Recovered/Not Resolved]
  - Off label use [Unknown]
  - Product administered at inappropriate site [Unknown]
  - Underdose [Unknown]

NARRATIVE: CASE EVENT DATE: 201902
